FAERS Safety Report 8418352-4 (Version None)
Quarter: 2012Q2

REPORT INFORMATION
  Report Type: 
  Country: None (occurrence: None)
  Receive Date: 20120607
  Receipt Date: 20120529
  Transmission Date: 20120825
  Serious: Yes (Other)
  Sender: FDA-Public Use
  Company Number: US-SANOFI-AVENTIS-2012SA028954

PATIENT
  Age: 61 Year
  Sex: Female
  Weight: 40.5 kg

DRUGS (4)
  1. LORTAB [Concomitant]
  2. PLAVIX [Suspect]
     Indication: STENT PLACEMENT
     Route: 048
     Dates: start: 20110121
  3. PLAVIX [Suspect]
     Route: 048
     Dates: start: 20110121
  4. NITROGLYCERIN [Concomitant]

REACTIONS (8)
  - WEIGHT DECREASED [None]
  - SKIN ULCER [None]
  - ABDOMINAL DISCOMFORT [None]
  - FATIGUE [None]
  - SCAB [None]
  - DECREASED APPETITE [None]
  - CONTUSION [None]
  - DIZZINESS [None]
